FAERS Safety Report 6788390-6 (Version None)
Quarter: 2010Q2

REPORT INFORMATION
  Report Type: 
  Country: None (occurrence: None)
  Receive Date: 20100623
  Receipt Date: 20080228
  Transmission Date: 20101027
  Serious: Yes (Other)
  Sender: FDA-Public Use
  Company Number: US-PFIZER INC-2008018998

PATIENT
  Sex: Male

DRUGS (1)
  1. SOLU-MEDROL [Suspect]

REACTIONS (1)
  - CATARACT SUBCAPSULAR [None]
